FAERS Safety Report 12908379 (Version 1)
Quarter: 2016Q4

REPORT INFORMATION
  Report Type: Spontaneous
  Country: PH (occurrence: PH)
  Receive Date: 20161103
  Receipt Date: 20161103
  Transmission Date: 20170207
  Serious: Yes (Other)
  Sender: FDA-Public Use
  Company Number: PH-ABBVIE-16P-128-1764393-00

PATIENT
  Age: 28 Year
  Sex: Female
  Weight: 72 kg

DRUGS (7)
  1. ULTANE [Suspect]
     Active Substance: SEVOFLURANE
     Indication: PRODUCT USED FOR UNKNOWN INDICATION
     Route: 055
     Dates: start: 20161013, end: 20161013
  2. SUCCINYL [Concomitant]
     Indication: SEDATION
  3. ISOFLURANE. [Concomitant]
     Active Substance: ISOFLURANE
     Indication: MAINTENANCE OF ANAESTHESIA
  4. FENTANYL. [Concomitant]
     Active Substance: FENTANYL
     Indication: SEDATION
  5. ATRACURIUM [Concomitant]
     Active Substance: ATRACURIUM
     Indication: SEDATION
  6. ULTANE [Suspect]
     Active Substance: SEVOFLURANE
     Route: 055
     Dates: start: 20161013, end: 20161013
  7. PROPOFOL. [Concomitant]
     Active Substance: PROPOFOL
     Indication: SEDATION

REACTIONS (6)
  - Unwanted awareness during anaesthesia [Recovered/Resolved]
  - Drug ineffective [Recovered/Resolved]
  - Tachycardia [Recovered/Resolved]
  - Dyskinesia [Recovered/Resolved]
  - Hypertension [Recovered/Resolved]
  - Exposure during pregnancy [Recovered/Resolved]

NARRATIVE: CASE EVENT DATE: 20161013
